FAERS Safety Report 5709761-2 (Version None)
Quarter: 2008Q2

REPORT INFORMATION
  Report Type: 
  Country: None (occurrence: None)
  Receive Date: 20080418
  Receipt Date: 20080407
  Transmission Date: 20081010
  Serious: Yes (Other)
  Sender: FDA-Public Use
  Company Number: GB-ROCHE-558684

PATIENT
  Age: 55 Year
  Sex: Male

DRUGS (4)
  1. RIBAVIRIN [Suspect]
     Route: 065
  2. PEG-INTERFERON ALFA NOS [Suspect]
     Route: 065
  3. INSULIN [Concomitant]
  4. INSULIN [Concomitant]

REACTIONS (3)
  - DRUG INEFFECTIVE [None]
  - GLYCOSYLATED HAEMOGLOBIN DECREASED [None]
  - HAEMOGLOBIN DECREASED [None]
